FAERS Safety Report 7469238 (Version 4)
Quarter: 2013Q2

REPORT INFORMATION
  Report Type: Report from Study
  Country: FR (occurrence: FR)
  Receive Date: 20100713
  Receipt Date: 20130612
  Transmission Date: 20140414
  Serious: Yes (Life-Threatening, Hospitalization)
  Sender: FDA-Public Use
  Company Number: FR-JNJFOC-20100701374

PATIENT
  Age: 33 Year
  Sex: Female
  Weight: 49 kg

DRUGS (9)
  1. REMICADE [Suspect]
     Indication: CROHN^S DISEASE
     Route: 042
     Dates: start: 20050707
  2. REMICADE [Suspect]
     Indication: CROHN^S DISEASE
     Route: 042
     Dates: start: 20051206
  3. REMICADE [Suspect]
     Indication: CROHN^S DISEASE
     Route: 042
     Dates: start: 20050623
  4. REMICADE [Suspect]
     Indication: PSORIASIS
     Route: 042
     Dates: start: 20050623
  5. REMICADE [Suspect]
     Indication: PSORIASIS
     Route: 042
     Dates: start: 20051206
  6. REMICADE [Suspect]
     Indication: PSORIASIS
     Route: 042
     Dates: start: 20050707
  7. ADALIMUMAB [Suspect]
     Indication: CROHN^S DISEASE
     Dates: start: 20080909, end: 20090506
  8. ADALIMUMAB [Suspect]
     Indication: CROHN^S DISEASE
     Dates: start: 20090506, end: 20090909
  9. ADALIMUMAB [Suspect]
     Indication: CROHN^S DISEASE
     Dates: start: 20090909, end: 20100118

REACTIONS (7)
  - Sports injury [Recovered/Resolved]
  - Abdominal injury [Recovered/Resolved]
  - Splenic rupture [Unknown]
  - Acute respiratory distress syndrome [Recovered/Resolved]
  - Peritonitis [Recovered/Resolved]
  - Large intestine perforation [Unknown]
  - Candida infection [Unknown]
